FAERS Safety Report 23339372 (Version 1)
Quarter: 2023Q4

REPORT INFORMATION
  Report Type: Spontaneous
  Country: IL (occurrence: IL)
  Receive Date: 20231226
  Receipt Date: 20231226
  Transmission Date: 20240110
  Serious: Yes (Life-Threatening, Hospitalization)
  Sender: FDA-Public Use
  Company Number: IL-TEVA-VS-3138015

PATIENT
  Age: 66 Year

DRUGS (1)
  1. NAPROXEN [Suspect]
     Active Substance: NAPROXEN
     Indication: Peripheral swelling
     Dosage: FOR THREE DAYS
     Route: 065

REACTIONS (6)
  - Hypersensitivity vasculitis [Recovered/Resolved]
  - Rash [Recovered/Resolved]
  - Skin necrosis [Recovered/Resolved]
  - Pancytopenia [Recovered/Resolved]
  - Palatal oedema [Recovered/Resolved]
  - Acute kidney injury [Recovered/Resolved]
